FAERS Safety Report 12606272 (Version 1)
Quarter: 2016Q3

REPORT INFORMATION
  Report Type: Spontaneous
  Country: US (occurrence: US)
  Receive Date: 20160729
  Receipt Date: 20160729
  Transmission Date: 20161109
  Serious: Yes (Hospitalization)
  Sender: FDA-Public Use
  Company Number: US-UNITED THERAPEUTICS-UNT-2016-011123

PATIENT
  Age: 1 Year
  Sex: Female
  Weight: 7.35 kg

DRUGS (1)
  1. REMODULIN [Suspect]
     Active Substance: TREPROSTINIL
     Indication: PULMONARY HYPERTENSION
     Dosage: 0.01667 ?G/KG, CONTINUING
     Route: 041
     Dates: start: 20160415

REACTIONS (1)
  - Complication associated with device [Recovered/Resolved]

NARRATIVE: CASE EVENT DATE: 20160709
